FAERS Safety Report 17252389 (Version 2)
Quarter: 2020Q1

REPORT INFORMATION
  Report Type: Spontaneous
  Country: US (occurrence: US)
  Receive Date: 20200109
  Receipt Date: 20200203
  Transmission Date: 20200409
  Serious: No
  Sender: FDA-Public Use
  Company Number: US-PFIZER INC-2020009497

PATIENT
  Age: 58 Year
  Sex: Male

DRUGS (3)
  1. NARDIL [Suspect]
     Active Substance: PHENELZINE SULFATE
     Indication: ANXIETY
     Dosage: 60 MG, DAILY
  2. NARDIL [Suspect]
     Active Substance: PHENELZINE SULFATE
     Indication: DEPRESSION
     Dosage: 90 MG, DAILY
  3. NARDIL [Suspect]
     Active Substance: PHENELZINE SULFATE
     Dosage: 45 MG, DAILY [3 X NARDIL 15 MG]

REACTIONS (1)
  - Dizziness [Unknown]
